FAERS Safety Report 7411274-7 (Version None)
Quarter: 2011Q2

REPORT INFORMATION
  Report Type: 
  Country: None (occurrence: None)
  Receive Date: 20110413
  Receipt Date: 20100514
  Transmission Date: 20111010
  Serious: Yes (Other)
  Sender: FDA-Public Use
  Company Number: US-BRISTOL-MYERS SQUIBB COMPANY-15102122

PATIENT
  Age: 75 Year
  Sex: Female
  Weight: 55 kg

DRUGS (6)
  1. DIPHENHYDRAMINE [Concomitant]
     Indication: PREMEDICATION
     Route: 042
  2. GRANISETRON HCL [Concomitant]
     Indication: PREMEDICATION
     Route: 042
  3. FAMOTIDINE [Concomitant]
     Indication: PREMEDICATION
     Route: 042
  4. DEXAMETHASONE [Concomitant]
     Indication: PREMEDICATION
     Route: 042
  5. VINORELBINE [Concomitant]
  6. ERBITUX [Suspect]
     Indication: LUNG NEOPLASM MALIGNANT
     Dosage: 10TH INFUSION
     Route: 042
     Dates: start: 20091231, end: 20100501

REACTIONS (1)
  - HYPERSENSITIVITY [None]
